FAERS Safety Report 18487046 (Version 1)
Quarter: 2020Q4

REPORT INFORMATION
  Report Type: Spontaneous
  Country: ES (occurrence: ES)
  Receive Date: 20201110
  Receipt Date: 20201110
  Transmission Date: 20210114
  Serious: Yes (Other)
  Sender: FDA-Public Use
  Company Number: ES-MYLANLABS-2020M1093370

PATIENT
  Age: 12 Year
  Sex: Male

DRUGS (3)
  1. OMEPRAZOLE MYLAN [Suspect]
     Active Substance: OMEPRAZOLE
     Dosage: 40 MILLIGRAM, BID
     Route: 065
  2. OMEPRAZOLE MYLAN [Suspect]
     Active Substance: OMEPRAZOLE
     Indication: GASTROOESOPHAGEAL REFLUX DISEASE
     Dosage: 20 MILLIGRAM, QD
     Route: 065
  3. OMEPRAZOLE MYLAN [Suspect]
     Active Substance: OMEPRAZOLE
     Dosage: 40 MILLIGRAM, QD
     Route: 065

REACTIONS (2)
  - Drug effective for unapproved indication [Unknown]
  - Gastroenteritis eosinophilic [Recovered/Resolved]
